FAERS Safety Report 13328928 (Version 1)
Quarter: 2017Q1

REPORT INFORMATION
  Report Type: Spontaneous
  Country: US (occurrence: US)
  Receive Date: 20170310
  Receipt Date: 20170310
  Transmission Date: 20170428
  Serious: No
  Sender: FDA-Public Use
  Company Number: None

PATIENT
  Age: 53 Year
  Sex: Female

DRUGS (1)
  1. COSENTYX [Suspect]
     Active Substance: SECUKINUMAB
     Indication: PSORIASIS
     Dosage: Q 4 WEEKS
     Route: 058
     Dates: start: 20170210

REACTIONS (2)
  - Oral herpes [None]
  - Aphthous ulcer [None]

NARRATIVE: CASE EVENT DATE: 20170215
